FAERS Safety Report 5352007-8 (Version None)
Quarter: 2007Q2

REPORT INFORMATION
  Report Type: 
  Country: None (occurrence: None)
  Receive Date: 20070611
  Receipt Date: 20070604
  Transmission Date: 20071010
  Serious: Yes (Life-Threatening, Other)
  Sender: FDA-Public Use
  Company Number: PHRM2007FR01474

PATIENT
  Age: 86 Year
  Sex: Female
  Weight: 42 kg

DRUGS (5)
  1. EXELON [Suspect]
     Indication: DEMENTIA
     Dosage: 1.5 MG, BID
     Route: 048
     Dates: start: 20070517, end: 20070518
  2. ZESTRIL [Concomitant]
     Indication: CARDIAC FAILURE
     Dosage: 2.5 MG, QD
     Route: 048
  3. DIGOXIN [Concomitant]
     Indication: ARRHYTHMIA
     Dosage: 0.125 MG, QD
     Route: 048
  4. TARDYFERON [Concomitant]
     Dosage: 80 MG, QD
     Route: 048
  5. DOLIPRANE [Concomitant]
     Route: 048

REACTIONS (4)
  - CEREBRAL VENTRICLE DILATATION [None]
  - COMA [None]
  - HYDROCEPHALUS [None]
  - UNRESPONSIVE TO STIMULI [None]
